FAERS Safety Report 23439261 (Version 2)
Quarter: 2024Q1

REPORT INFORMATION
  Report Type: Report from Study
  Country: US (occurrence: US)
  Receive Date: 20240124
  Receipt Date: 20240306
  Transmission Date: 20240409
  Serious: Yes (Other)
  Sender: FDA-Public Use
  Company Number: US-BAYER-2024A012022

PATIENT
  Age: 39 Year
  Sex: Female

DRUGS (1)
  1. STIVARGA [Suspect]
     Active Substance: REGORAFENIB
     Indication: Colon cancer
     Dosage: 80 MG, QD  (21 DAYS ON), 7 DAYS OFF
     Dates: end: 202401

REACTIONS (10)
  - Abdominal pain upper [Unknown]
  - Mobility decreased [Unknown]
  - Drug intolerance [Unknown]
  - Vomiting [Unknown]
  - Diarrhoea [Unknown]
  - Nausea [Unknown]
  - Malaise [Unknown]
  - Off label use [None]
  - Drug ineffective [Unknown]
  - Adverse drug reaction [Unknown]
